FAERS Safety Report 5107932-X (Version None)
Quarter: 2006Q3

REPORT INFORMATION
  Report Type: 
  Country: None (occurrence: None)
  Receive Date: 20060915
  Receipt Date: 20060905
  Transmission Date: 20061208
  Serious: Yes (Death)
  Sender: FDA-Public Use
  Company Number: 2006S1007811

PATIENT
  Age: 87 Year
  Sex: Female
  Weight: 61.6892 kg

DRUGS (4)
  1. CLOZAPINE [Suspect]
     Dosage: 50 MG;BID;PO
     Route: 048
     Dates: end: 20060101
  2. PERGOLIDE [Concomitant]
  3. FUROSEMIDE [Concomitant]
  4. ATENOLOL [Concomitant]

REACTIONS (2)
  - DISEASE PROGRESSION [None]
  - PARKINSON'S DISEASE [None]
